FAERS Safety Report 6127357-8 (Version None)
Quarter: 2009Q1

REPORT INFORMATION
  Report Type: 
  Country: None (occurrence: None)
  Receive Date: 20090319
  Receipt Date: 20090313
  Transmission Date: 20090719
  Serious: Yes (Hospitalization)
  Sender: FDA-Public Use
  Company Number: 187707USA

PATIENT
  Age: 56 Year
  Sex: Female

DRUGS (4)
  1. METHOTREXATE [Suspect]
     Indication: SYSTEMIC LUPUS ERYTHEMATOSUS
  2. BONIVA [Suspect]
     Indication: OSTEOPOROSIS
     Dosage: 150 MG (1 IN 1 M)
  3. STEROIDS NOS [Concomitant]
  4. VIVELLE [Concomitant]

REACTIONS (4)
  - ANAEMIA [None]
  - DISEASE PROGRESSION [None]
  - HIP ARTHROPLASTY [None]
  - TRANSFUSION REACTION [None]
